FAERS Safety Report 23944389 (Version 1)
Quarter: 2024Q2

REPORT INFORMATION
  Report Type: Spontaneous
  Country: JP (occurrence: JP)
  Receive Date: 20240606
  Receipt Date: 20240606
  Transmission Date: 20240715
  Serious: Yes (Death, Other)
  Sender: FDA-Public Use
  Company Number: JP-Indoco-000556

PATIENT
  Age: 2 Decade
  Sex: Female
  Weight: 41 kg

DRUGS (2)
  1. LACOSAMIDE [Suspect]
     Active Substance: LACOSAMIDE
     Dosage: 63 LACOSAMIDE (50 MG) TABLETS
  2. MIRTAZAPINE [Suspect]
     Active Substance: MIRTAZAPINE
     Dosage: 60 MIRTAZAPINE (15 MG) TABLETS.

REACTIONS (2)
  - Myocardial ischaemia [Fatal]
  - Toxicity to various agents [Fatal]
